FAERS Safety Report 6995105-5 (Version None)
Quarter: 2010Q3

REPORT INFORMATION
  Report Type: 
  Country: None (occurrence: None)
  Receive Date: 20100917
  Receipt Date: 20081120
  Transmission Date: 20110219
  Serious: Yes (Other)
  Sender: FDA-Public Use
  Company Number: US-WYE-H04700608

PATIENT
  Age: 64 Year
  Sex: Female

DRUGS (4)
  1. PREMPRO [Suspect]
     Indication: HORMONE REPLACEMENT THERAPY
     Route: 048
     Dates: start: 20000101, end: 20080301
  2. PREMPRO [Interacting]
     Dosage: ONE TABLET ^50MG^ AT NIGHT
     Route: 048
     Dates: start: 20081101
  3. PAXIL [Concomitant]
     Dosage: UNKNOWN
     Route: 065
  4. XANAX [Interacting]
     Dosage: 0.5MG
     Route: 065

REACTIONS (8)
  - ANXIETY [None]
  - CEREBROVASCULAR ACCIDENT [None]
  - DEPRESSION [None]
  - DRUG INTERACTION [None]
  - INSOMNIA [None]
  - NAUSEA [None]
  - NERVOUS SYSTEM DISORDER [None]
  - SYNCOPE [None]
